FAERS Safety Report 7618425-X (Version None)
Quarter: 2011Q3

REPORT INFORMATION
  Report Type: 
  Country: None (occurrence: None)
  Receive Date: 20110718
  Receipt Date: 20110704
  Transmission Date: 20111222
  Serious: Yes (Other)
  Sender: FDA-Public Use
  Company Number: NL-SANOFI-AVENTIS-2011SA011263

PATIENT
  Age: 68 Year
  Sex: Male
  Weight: 96 kg

DRUGS (5)
  1. THIAZIDES [Concomitant]
  2. ASPIRIN [Concomitant]
  3. PHENPROCOUMON [Concomitant]
     Dosage: 5.5 MG WEEKLY
  4. DRONEDARONE HCL [Suspect]
     Indication: ATRIAL FIBRILLATION
     Route: 048
     Dates: start: 20110208, end: 20110221
  5. ENALAPRIL MALEATE [Suspect]

REACTIONS (1)
  - HEPATIC ENZYME INCREASED [None]
